FAERS Safety Report 18820399 (Version 1)
Quarter: 2021Q1

REPORT INFORMATION
  Report Type: Spontaneous
  Country: US (occurrence: US)
  Receive Date: 20210201
  Receipt Date: 20210201
  Transmission Date: 20210419
  Serious: Yes (Other)
  Sender: FDA-Public Use
  Company Number: None

PATIENT
  Age: 74 Year
  Sex: Male
  Weight: 83.25 kg

DRUGS (10)
  1. LATANOPROST. [Concomitant]
     Active Substance: LATANOPROST
  2. TIVICAY [Concomitant]
     Active Substance: DOLUTEGRAVIR SODIUM
  3. PREZCOBIX [Concomitant]
     Active Substance: COBICISTAT\DARUNAVIR ETHANOLATE
  4. AMLODIPINE [Concomitant]
     Active Substance: AMLODIPINE BESYLATE
  5. GLIMEPIRIDE. [Concomitant]
     Active Substance: GLIMEPIRIDE
  6. TESTOSTERONE. [Concomitant]
     Active Substance: TESTOSTERONE
  7. METOPROLOL SUCCINATE. [Concomitant]
     Active Substance: METOPROLOL SUCCINATE
  8. ATORVASTATIN [Concomitant]
     Active Substance: ATORVASTATIN
  9. RYBELSUS [Suspect]
     Active Substance: SEMAGLUTIDE
     Indication: TYPE 1 DIABETES MELLITUS
     Dosage: ?          QUANTITY:1 TABLET(S);?
     Route: 048
     Dates: start: 20201027, end: 20201218
  10. FLUTICASONE SPRAY [Concomitant]
     Active Substance: FLUTICASONE

REACTIONS (13)
  - Decreased appetite [None]
  - Hypersomnia [None]
  - Renal injury [None]
  - Abdominal pain upper [None]
  - Renal failure [None]
  - Constipation [None]
  - Product complaint [None]
  - Headache [None]
  - Dehydration [None]
  - Asthenia [None]
  - Diarrhoea [None]
  - Vision blurred [None]
  - Dizziness [None]

NARRATIVE: CASE EVENT DATE: 20201130
